FAERS Safety Report 10240904 (Version 2)
Quarter: 2014Q3

REPORT INFORMATION
  Report Type: Report from Study
  Country: GB (occurrence: GB)
  Receive Date: 20140617
  Receipt Date: 20140807
  Transmission Date: 20150326
  Serious: Yes (Death, Hospitalization)
  Sender: FDA-Public Use
  Company Number: GB-SA-2014SA077613

PATIENT
  Age: 71 Year
  Sex: Male
  Weight: 90.9 kg

DRUGS (29)
  1. HYOSCINE BUTYLBROMIDE [Concomitant]
     Active Substance: BUTYLSCOPOLAMINE
     Route: 042
     Dates: start: 20140723, end: 20140724
  2. NYSTATIN. [Concomitant]
     Active Substance: NYSTATIN
     Dosage: QDF DOSE:100000 UNIT(S)
     Route: 048
     Dates: start: 20140718, end: 20140725
  3. VITAMIN K [Concomitant]
     Active Substance: PHYTONADIONE
     Dosage: QDF
     Route: 040
     Dates: start: 20140723, end: 20140723
  4. PIPERACILLIN/TAZOBACTAM [Concomitant]
     Active Substance: PIPERACILLIN SODIUM\TAZOBACTAM SODIUM
     Route: 042
     Dates: start: 20140721, end: 20140722
  5. CYCLIZINE [Concomitant]
     Active Substance: CYCLIZINE
     Route: 048
     Dates: start: 20140713, end: 20140724
  6. CABAZITAXEL [Suspect]
     Active Substance: CABAZITAXEL
     Indication: TRANSITIONAL CELL CARCINOMA URETHRA
     Route: 042
     Dates: start: 20140521, end: 20140521
  7. CYCLIZINE [Concomitant]
     Active Substance: CYCLIZINE
     Route: 058
     Dates: start: 20140724, end: 20140726
  8. LANSOPRAZOLE. [Concomitant]
     Active Substance: LANSOPRAZOLE
     Route: 048
     Dates: start: 20140713, end: 20140726
  9. MORPHINE SULFATE. [Concomitant]
     Active Substance: MORPHINE SULFATE
     Dosage: 1.25-2.5MG
     Route: 058
     Dates: start: 20140724, end: 20140724
  10. OXYGEN. [Concomitant]
     Active Substance: OXYGEN
     Dosage: 1.4 L/MIN?FACE MASK?GAS
     Dates: start: 20140714, end: 20140726
  11. PARACETAMOL [Concomitant]
     Active Substance: ACETAMINOPHEN
     Route: 040
     Dates: start: 20140723, end: 20140724
  12. CYCLIZINE [Concomitant]
     Active Substance: CYCLIZINE
     Route: 042
     Dates: start: 20140713, end: 20140724
  13. HYOSCINE BUTYLBROMIDE [Concomitant]
     Active Substance: BUTYLSCOPOLAMINE
     Route: 058
     Dates: start: 20140724, end: 20140726
  14. MORPHINE SULFATE. [Concomitant]
     Active Substance: MORPHINE SULFATE
     Dosage: 5-10 MG
     Route: 048
     Dates: start: 20140725, end: 20140726
  15. MORPHINE SULFATE. [Concomitant]
     Active Substance: MORPHINE SULFATE
     Dosage: 1.25-2.5MG
     Route: 058
     Dates: start: 20140724, end: 20140726
  16. NYSTATIN. [Concomitant]
     Active Substance: NYSTATIN
     Dosage: QDS DOSE:100000 UNIT(S)
     Route: 048
     Dates: start: 20140718, end: 20140718
  17. CABAZITAXEL [Suspect]
     Active Substance: CABAZITAXEL
     Indication: TRANSITIONAL CELL CARCINOMA URETHRA
     Route: 042
     Dates: start: 20140129, end: 20140129
  18. NORMAL SALINE [Concomitant]
     Active Substance: SODIUM CHLORIDE
     Dosage: 5-10 ML
     Route: 040
     Dates: start: 20140712, end: 20140724
  19. COCODAMOL [Concomitant]
     Active Substance: ACETAMINOPHEN\CODEINE PHOSPHATE
     Route: 048
     Dates: start: 20140712, end: 20140723
  20. MIDAZOLAM [Concomitant]
     Active Substance: MIDAZOLAM\MIDAZOLAM HYDROCHLORIDE
     Dosage: 1.25-2.5 MG
     Route: 058
     Dates: start: 20140724, end: 20140726
  21. VITAMIN K [Concomitant]
     Active Substance: PHYTONADIONE
     Dosage: QDF
     Route: 040
     Dates: start: 20140714, end: 20140714
  22. CYCLIZINE [Concomitant]
     Active Substance: CYCLIZINE
     Route: 048
     Dates: start: 20140724, end: 20140726
  23. MORPHINE SULFATE. [Concomitant]
     Active Substance: MORPHINE SULFATE
     Route: 058
     Dates: start: 20140723, end: 20140723
  24. NYSTATIN. [Concomitant]
     Active Substance: NYSTATIN
     Dosage: QDF DOSE:100000 UNIT(S)
     Route: 048
     Dates: start: 20140718, end: 20140718
  25. PARACETAMOL [Concomitant]
     Active Substance: ACETAMINOPHEN
     Route: 048
     Dates: start: 20140724, end: 20140726
  26. MORPHINE SULFATE. [Concomitant]
     Active Substance: MORPHINE SULFATE
     Dosage: 5-10 MG
     Route: 040
     Dates: start: 20140723, end: 20140724
  27. NYSTATIN. [Concomitant]
     Active Substance: NYSTATIN
     Dosage: QDF DOSE:100000 UNIT(S)
     Route: 048
     Dates: start: 20140718, end: 20140718
  28. ONDANSETRON [Concomitant]
     Active Substance: ONDANSETRON
     Route: 042
     Dates: start: 20140713, end: 20140724
  29. PIPERACILLIN/TAZOBACTAM [Concomitant]
     Active Substance: PIPERACILLIN SODIUM\TAZOBACTAM SODIUM
     Route: 042
     Dates: start: 20140712, end: 20140721

REACTIONS (2)
  - Ascites [Not Recovered/Not Resolved]
  - Bladder cancer [Fatal]

NARRATIVE: CASE EVENT DATE: 20140530
